FAERS Safety Report 16240511 (Version 1)
Quarter: 2019Q2

REPORT INFORMATION
  Report Type: Spontaneous
  Country: US (occurrence: US)
  Receive Date: 20190425
  Receipt Date: 20190425
  Transmission Date: 20190711
  Serious: Yes (Hospitalization)
  Sender: FDA-Public Use
  Company Number: US-MYLANLABS-2019M1038457

PATIENT
  Age: 29 Year
  Sex: Male

DRUGS (1)
  1. NAPROXEN. [Suspect]
     Active Substance: NAPROXEN
     Indication: PRODUCT USED FOR UNKNOWN INDICATION
     Dosage: FOR 2 DAYS
     Route: 065

REACTIONS (5)
  - Thecal sac compression [Recovered/Resolved]
  - Overdose [Recovered/Resolved]
  - Lumbar radiculopathy [Recovered/Resolved]
  - Spinal epidural haematoma [Recovered/Resolved]
  - Radiculopathy [Recovered/Resolved]
